FAERS Safety Report 5206826-9 (Version None)
Quarter: 2006Q4

REPORT INFORMATION
  Report Type: 
  Country: None (occurrence: None)
  Receive Date: 20061026
  Receipt Date: 20060814
  Transmission Date: 20070319
  Serious: No
  Sender: FDA-Public Use
  Company Number: 2006099748

PATIENT
  Age: 76 Year
  Sex: Female
  Weight: 61.6892 kg

DRUGS (5)
  1. LYRICA [Suspect]
     Indication: ANXIETY DISORDER
     Dosage: 150 MG (50 MG, 3 IN 1 D)
     Dates: start: 20060101
  2. KLONOPIN [Concomitant]
  3. PROZAC [Concomitant]
  4. ALL OTHER THERAPEUTIC PRODUCTS (ALL OTHER THERAPEUTIC PRODUCTS) [Concomitant]
  5. DULCOLAX [Concomitant]

REACTIONS (1)
  - CONSTIPATION [None]
